FAERS Safety Report 11661820 (Version 1)
Quarter: 2015Q4

REPORT INFORMATION
  Report Type: Spontaneous
  Country: DE (occurrence: DE)
  Receive Date: 20151026
  Receipt Date: 20151026
  Transmission Date: 20160304
  Serious: Yes (Other)
  Sender: FDA-Public Use
  Company Number: GXKR2015DE004838

PATIENT

DRUGS (6)
  1. PROGESTERON [Concomitant]
     Indication: PROPHYLAXIS OF ABORTION
     Dosage: 200 [MG/D ]
     Route: 064
     Dates: start: 20141021, end: 20141231
  2. CLEXANE [Concomitant]
     Active Substance: ENOXAPARIN SODIUM
     Indication: COAGULOPATHY
     Dosage: 40 [MG/D ]
     Route: 064
     Dates: start: 20141027, end: 20141231
  3. ESTRIFAM [Concomitant]
     Active Substance: ESTRADIOL
     Indication: PROPHYLAXIS OF ABORTION
     Route: 064
     Dates: start: 20141021, end: 20141231
  4. MISOPROSTOL. [Concomitant]
     Active Substance: MISOPROSTOL
     Indication: LABOUR INDUCTION
     Route: 064
     Dates: start: 20150702, end: 20150702
  5. FEMIBION                           /01597501/ [Concomitant]
     Active Substance: CALCIUM PHOSPHATE, DIBASIC, ANHYDROUS\FERROUS SUCCINATE\MAGNESIUM HYDROXIDE
     Indication: PROPHYLAXIS OF NEURAL TUBE DEFECT
     Route: 064
     Dates: start: 20141008, end: 20150701
  6. ZIPRASIDONE. [Suspect]
     Active Substance: ZIPRASIDONE
     Indication: PSYCHOTIC DISORDER
     Dosage: MATERNAL DOSE. 80 [MG/D]
     Route: 064
     Dates: start: 20141007, end: 20150706

REACTIONS (1)
  - Small for dates baby [Recovered/Resolved]

NARRATIVE: CASE EVENT DATE: 20150706
